FAERS Safety Report 7587978-2 (Version None)
Quarter: 2011Q3

REPORT INFORMATION
  Report Type: 
  Country: None (occurrence: None)
  Receive Date: 20110705
  Receipt Date: 20110628
  Transmission Date: 20111222
  Serious: Yes (Other)
  Sender: FDA-Public Use
  Company Number: US-PFIZER INC-2011097174

PATIENT
  Age: 61 Year
  Sex: Male

DRUGS (3)
  1. THIOTHIXENE HCL [Suspect]
     Indication: DELUSION
  2. THIOTHIXENE HCL [Suspect]
     Indication: HALLUCINATION
  3. THIOTHIXENE HCL [Suspect]
     Indication: SCHIZOPHRENIA
     Dosage: 5 MG, 2X/DAY
     Route: 048

REACTIONS (2)
  - PSYCHOTIC DISORDER [None]
  - EXTRAPYRAMIDAL DISORDER [None]
